FAERS Safety Report 11036550 (Version 1)
Quarter: 2015Q2

REPORT INFORMATION
  Report Type: Spontaneous
  Country: GR (occurrence: GR)
  Receive Date: 20150416
  Receipt Date: 20150416
  Transmission Date: 20150821
  Serious: Yes (Hospitalization, Other)
  Sender: FDA-Public Use
  Company Number: GR-009507513-1504GRC004799

PATIENT
  Age: 78 Year
  Sex: Male

DRUGS (1)
  1. INEGY [Suspect]
     Active Substance: EZETIMIBE\SIMVASTATIN
     Indication: DYSLIPIDAEMIA
     Dosage: 1 TABLET EVERY DAY
     Route: 048
     Dates: start: 2009

REACTIONS (1)
  - Arterial repair [Unknown]

NARRATIVE: CASE EVENT DATE: 20150326
